FAERS Safety Report 7785274-1 (Version None)
Quarter: 2011Q3

REPORT INFORMATION
  Report Type: 
  Country: None (occurrence: None)
  Receive Date: 20110929
  Receipt Date: 20110919
  Transmission Date: 20111222
  Serious: Yes (Hospitalization)
  Sender: FDA-Public Use
  Company Number: US-JNJFOC-20110203220

PATIENT
  Sex: Female
  Weight: 10.9 kg

DRUGS (7)
  1. LEUKINE [Concomitant]
  2. ANTIBIOTICS [Concomitant]
  3. PREVACID [Suspect]
     Indication: PRODUCT USED FOR UNKNOWN INDICATION
  4. FERROUS SULFATE TAB [Suspect]
     Indication: PRODUCT USED FOR UNKNOWN INDICATION
  5. LEUKINE [Concomitant]
     Dates: start: 20100222, end: 20100710
  6. INFLIXIMAB, RECOMBINANT [Suspect]
     Indication: INFLAMMATORY BOWEL DISEASE
     Route: 042
     Dates: start: 20090905, end: 20091015
  7. MICONAZOLE [Concomitant]

REACTIONS (3)
  - CLOSTRIDIAL INFECTION [None]
  - IRON DEFICIENCY ANAEMIA [None]
  - ROTAVIRUS INFECTION [None]
